FAERS Safety Report 4963992-8 (Version None)
Quarter: 2006Q2

REPORT INFORMATION
  Report Type: 
  Country: None (occurrence: None)
  Receive Date: 20060405
  Receipt Date: 20050808
  Transmission Date: 20061013
  Serious: Yes (Hospitalization)
  Sender: FDA-Public Use
  Company Number: US-MERCK-0508USA01543

PATIENT
  Age: 53 Year
  Sex: Male
  Weight: 82 kg

DRUGS (2)
  1. VIOXX [Suspect]
     Indication: BACK PAIN
     Route: 048
     Dates: start: 20000106, end: 20040901
  2. VIOXX [Suspect]
     Route: 048
     Dates: start: 20000106, end: 20040901

REACTIONS (11)
  - ANAEMIA [None]
  - BACK PAIN [None]
  - BLOOD POTASSIUM INCREASED [None]
  - CEREBRAL INFARCTION [None]
  - CEREBROVASCULAR ACCIDENT [None]
  - CHEST X-RAY ABNORMAL [None]
  - DEPRESSION [None]
  - DIABETES MELLITUS [None]
  - POST PROCEDURAL COMPLICATION [None]
  - POSTOPERATIVE WOUND INFECTION [None]
  - PULMONARY SARCOIDOSIS [None]
